FAERS Safety Report 6292208-8 (Version None)
Quarter: 2009Q3

REPORT INFORMATION
  Report Type: 
  Country: None (occurrence: None)
  Receive Date: 20090731
  Receipt Date: 20090721
  Transmission Date: 20100115
  Serious: Yes (Hospitalization)
  Sender: FDA-Public Use
  Company Number: MX-RANBAXY-2009RR-25821

PATIENT
  Age: 48 Year
  Sex: Female

DRUGS (4)
  1. CLINDAMYCIN [Suspect]
     Route: 048
  2. CHLORPHENIRAMINE MALEATE [Suspect]
  3. ACETAMINOPHEN [Concomitant]
  4. BETAMETHASONE [Concomitant]

REACTIONS (2)
  - CHOLESTASIS [None]
  - STEVENS-JOHNSON SYNDROME [None]
